FAERS Safety Report 9354133 (Version 1)
Quarter: 2013Q2

REPORT INFORMATION
  Report Type: Spontaneous
  Country: US (occurrence: US)
  Receive Date: 20130618
  Receipt Date: 20130618
  Transmission Date: 20140414
  Serious: Yes (Hospitalization)
  Sender: FDA-Public Use
  Company Number: US-GLAXOSMITHKLINE-A1027121A

PATIENT
  Age: 50 Year
  Sex: Female

DRUGS (7)
  1. ADVAIR [Suspect]
     Indication: CHRONIC OBSTRUCTIVE PULMONARY DISEASE
     Route: 055
     Dates: start: 201305, end: 201305
  2. MORPHINE [Concomitant]
  3. LORTAB [Concomitant]
  4. POTASSIUM [Concomitant]
  5. LASIX [Concomitant]
  6. PROZAC [Concomitant]
  7. XANAX [Concomitant]

REACTIONS (5)
  - Loss of consciousness [Recovering/Resolving]
  - Asthenia [Recovering/Resolving]
  - Ill-defined disorder [Recovering/Resolving]
  - Swelling [Recovering/Resolving]
  - Memory impairment [Recovering/Resolving]
